FAERS Safety Report 8578061-8 (Version None)
Quarter: 2012Q3

REPORT INFORMATION
  Report Type: 
  Country: None (occurrence: None)
  Receive Date: 20120726
  Receipt Date: 20120716
  Transmission Date: 20120928
  Serious: Yes (Hospitalization)
  Sender: FDA-Public Use
  Company Number: DSA_58625_2012

PATIENT
  Age: 74 Year
  Sex: Female

DRUGS (14)
  1. DUPHALAC [Concomitant]
  2. METFORMIN HCL [Concomitant]
  3. DEANXIT [Concomitant]
  4. COLCHICINE [Concomitant]
  5. GLYCERINE [Concomitant]
  6. DILTIAZEM [Suspect]
     Indication: HYPERTENSION
     Dosage: 300 MG, ORAL
     Route: 048
     Dates: start: 20000101
  7. VASTAREL [Concomitant]
  8. MOTILIUM [Concomitant]
  9. PLAVIX [Suspect]
     Indication: CORONARY ARTERY DISEASE
     Dosage: 75 MG, ORAL
     Route: 048
     Dates: start: 20000101
  10. IRBESARTAN AND HYDROCHLOROTHIAZIDE [Suspect]
     Indication: HYPERTENSION
     Dosage: 300/12.5 MG, ORAL
     Route: 048
     Dates: start: 20000101
  11. SIMVASTATIN [Concomitant]
  12. DECALCIT [Concomitant]
  13. FLUTICASONE PROPIONATE/SALMETEROL [Concomitant]
  14. CAFFEINE W/CODEINE PHOPSHATE/PARACETAMOL [Concomitant]

REACTIONS (11)
  - BLOOD POTASSIUM INCREASED [None]
  - ANAL SPHINCTER HYPERTONIA [None]
  - NAUSEA [None]
  - ALANINE AMINOTRANSFERASE INCREASED [None]
  - BLOOD CALCIUM INCREASED [None]
  - CONSTIPATION [None]
  - ASPARTATE AMINOTRANSFERASE INCREASED [None]
  - LOW DENSITY LIPOPROTEIN DECREASED [None]
  - DIARRHOEA [None]
  - BLOOD MAGNESIUM INCREASED [None]
  - BLOOD CREATINE PHOSPHOKINASE INCREASED [None]
